FAERS Safety Report 23303936 (Version 6)
Quarter: 2024Q1

REPORT INFORMATION
  Report Type: Spontaneous
  Country: US (occurrence: US)
  Receive Date: 20231215
  Receipt Date: 20240312
  Transmission Date: 20240409
  Serious: No
  Sender: FDA-Public Use
  Company Number: US-PFIZER INC-PV202300197974

PATIENT
  Age: 68 Year
  Sex: Female

DRUGS (3)
  1. IBRANCE [Suspect]
     Active Substance: PALBOCICLIB
     Dosage: 125 MG
  2. IBRANCE [Suspect]
     Active Substance: PALBOCICLIB
     Dosage: 100 MG
  3. IBRANCE [Suspect]
     Active Substance: PALBOCICLIB
     Dosage: 75 MG

REACTIONS (10)
  - White blood cell count decreased [Recovering/Resolving]
  - Tumour marker increased [Unknown]
  - Platelet count decreased [Unknown]
  - Headache [Recovered/Resolved]
  - Epistaxis [Recovered/Resolved]
  - Breast ulceration [Recovering/Resolving]
  - Lymphadenopathy [Unknown]
  - Feeling abnormal [Recovering/Resolving]
  - Paraesthesia [Unknown]
  - Paraesthesia [Recovering/Resolving]
